FAERS Safety Report 20337635 (Version 2)
Quarter: 2022Q1

REPORT INFORMATION
  Report Type: Spontaneous
  Country: US (occurrence: US)
  Receive Date: 20220114
  Receipt Date: 20220117
  Transmission Date: 20220423
  Serious: Yes (Other)
  Sender: FDA-Public Use
  Company Number: US-SANOFI-00923473

PATIENT
  Age: 36 Year
  Sex: Male

DRUGS (1)
  1. TOUJEO MAX [Suspect]
     Active Substance: INSULIN GLARGINE
     Indication: Type 1 diabetes mellitus
     Dosage: 64 U, QD,AT NIGHT
     Route: 065
     Dates: start: 2017

REACTIONS (6)
  - Diabetes mellitus inadequate control [Unknown]
  - Drug ineffective [Unknown]
  - Headache [Unknown]
  - Abdominal discomfort [Unknown]
  - Feeling abnormal [Unknown]
  - Sleep disorder [Unknown]
